FAERS Safety Report 6928256-1 (Version None)
Quarter: 2010Q3

REPORT INFORMATION
  Report Type: 
  Country: None (occurrence: None)
  Receive Date: 20100817
  Receipt Date: 20100806
  Transmission Date: 20110219
  Serious: Yes (Other)
  Sender: FDA-Public Use
  Company Number: GB-ROCHE-719617

PATIENT
  Sex: Female
  Weight: 51.3 kg

DRUGS (2)
  1. BEVACIZUMAB [Suspect]
     Indication: BREAST CANCER
     Dosage: CYCLE:2, FRQUENCY: DAY:1X3 CYCLES EVERY 3 WEEKS. FREQUNCY, FORM: TAKEN FROM PROTOCOL
     Route: 042
     Dates: start: 20100514
  2. DOCETAXEL [Suspect]
     Indication: BREAST CANCER
     Dosage: CYCLE:2, DAY 1X 3 CYCLES EVERY 3 WEEKS. FREQUNCY, FORM: TAKEN FROM PROTOCOL
     Route: 042
     Dates: start: 20100514

REACTIONS (1)
  - SEROMA [None]
